FAERS Safety Report 8644312 (Version 3)
Quarter: 2013Q2

REPORT INFORMATION
  Report Type: Report from Study
  Country: US (occurrence: US)
  Receive Date: 20120629
  Receipt Date: 20130620
  Transmission Date: 20140414
  Serious: Yes (Hospitalization, Other)
  Sender: FDA-Public Use
  Company Number: US-ABBOTT-12P-163-0948606-00

PATIENT
  Age: 57 Year
  Sex: Female
  Weight: 90.8 kg

DRUGS (13)
  1. HUMIRA [Suspect]
     Indication: PSORIASIS
     Dates: start: 201006, end: 201010
  2. HUMIRA [Suspect]
     Indication: PSORIASIS
     Dates: start: 201010
  3. HUMIRA [Suspect]
     Dates: start: 2010
  4. VANCOMYCIN [Suspect]
     Indication: ANTIBIOTIC PROPHYLAXIS
     Dates: start: 2011, end: 2011
  5. BABY ASPIRIN [Suspect]
     Indication: PRODUCT USED FOR UNKNOWN INDICATION
     Dates: start: 201201, end: 201204
  6. BABY ASPIRIN [Suspect]
     Dates: start: 201204
  7. RETIN-A [Concomitant]
     Indication: ROSACEA
     Dosage: AT NIGHT, TO FACE, AS NEEDED
     Route: 061
  8. RETIN-A [Concomitant]
     Dosage: AT NIGHT, TO FACE, DAILY
     Route: 061
  9. RETIN-A [Concomitant]
     Dosage: TO FACE, ONCE DAILY AT NIGHT
     Route: 061
  10. BENZOYL PEROXIDE [Concomitant]
     Indication: ROSACEA
     Dosage: TOPICAL, FOR FACE, AS NEEDED
  11. BENZOYL PEROXIDE [Concomitant]
     Dosage: FOR FACE, DAILY
     Route: 061
  12. BENICAR [Concomitant]
     Indication: HYPERTENSION
  13. FLONASE [Concomitant]
     Indication: HYPERSENSITIVITY

REACTIONS (21)
  - Device failure [Not Recovered/Not Resolved]
  - Pruritus [Recovered/Resolved]
  - Drug effect decreased [Unknown]
  - Unevaluable event [Unknown]
  - Rosacea [Not Recovered/Not Resolved]
  - Hyperhidrosis [Unknown]
  - Psoriasis [Unknown]
  - Increased tendency to bruise [Not Recovered/Not Resolved]
  - Injection site bruising [Not Recovered/Not Resolved]
  - Injection site pain [Not Recovered/Not Resolved]
  - Procedural haemorrhage [Recovered/Resolved]
  - Laceration [Recovering/Resolving]
  - Smear cervix abnormal [Unknown]
  - Platelet morphology abnormal [Not Recovered/Not Resolved]
  - Injection site bruising [Not Recovered/Not Resolved]
  - Impaired healing [Not Recovered/Not Resolved]
  - Rash macular [Recovered/Resolved]
  - Myalgia [Not Recovered/Not Resolved]
  - Device failure [Not Recovered/Not Resolved]
  - Underdose [Unknown]
  - Wound haemorrhage [Recovering/Resolving]
